FAERS Safety Report 17613040 (Version 4)
Quarter: 2020Q3

REPORT INFORMATION
  Report Type: Spontaneous
  Country: US (occurrence: US)
  Receive Date: 20200401
  Receipt Date: 20200829
  Transmission Date: 20201102
  Serious: Yes (Hospitalization)
  Sender: FDA-Public Use
  Company Number: NVSC2020US083079

PATIENT
  Age: 57 Year
  Sex: Female
  Weight: 109.3 kg

DRUGS (14)
  1. AXITINIB [Suspect]
     Active Substance: AXITINIB
     Dosage: 5 MG, BID
     Route: 065
     Dates: start: 20200305
  2. AXITINIB [Suspect]
     Active Substance: AXITINIB
     Dosage: 5 MG, BID
     Route: 065
     Dates: start: 20200309
  3. AXITINIB [Suspect]
     Active Substance: AXITINIB
     Dosage: 5 MG, BID
     Route: 065
     Dates: start: 20200402
  4. ROXICODONE [Concomitant]
     Active Substance: OXYCODONE HYDROCHLORIDE
     Indication: PAIN
     Dosage: UNK
     Route: 065
     Dates: start: 20161229
  5. RECLAST [Suspect]
     Active Substance: ZOLEDRONIC ACID
     Indication: OSTEOPOROSIS
     Dosage: 5 MG, ONCE/SINGLE
     Route: 042
     Dates: start: 20200305, end: 20200305
  6. LOVENOX [Concomitant]
     Active Substance: ENOXAPARIN SODIUM
     Indication: PROPHYLAXIS
     Dosage: UNK
     Route: 065
     Dates: start: 20160508
  7. MELATONIN [Concomitant]
     Active Substance: MELATONIN
     Indication: INSOMNIA
     Dosage: UNK
     Route: 065
     Dates: start: 20160520
  8. ZOFRAN [Concomitant]
     Active Substance: ONDANSETRON HYDROCHLORIDE
     Indication: NAUSEA
     Dosage: UNK
     Route: 065
     Dates: start: 20191220
  9. ZOFRAN [Concomitant]
     Active Substance: ONDANSETRON HYDROCHLORIDE
     Dosage: UNK
     Route: 065
     Dates: start: 20200305
  10. DILAUDID [Concomitant]
     Active Substance: HYDROMORPHONE HYDROCHLORIDE
     Indication: PRODUCT USED FOR UNKNOWN INDICATION
     Dosage: UNK
     Route: 065
     Dates: start: 20200305
  11. AVELUMAB [Suspect]
     Active Substance: AVELUMAB
     Indication: RENAL CELL CARCINOMA
     Dosage: 958 MG (IN SODIUM)
     Route: 065
     Dates: start: 20160324, end: 20160505
  12. AXITINIB [Suspect]
     Active Substance: AXITINIB
     Indication: RENAL CELL CARCINOMA
     Dosage: 5 MG, BID
     Route: 048
     Dates: start: 20160324
  13. AXITINIB [Suspect]
     Active Substance: AXITINIB
     Dosage: 5 MG, BID
     Route: 065
     Dates: start: 20160924
  14. XANAX [Concomitant]
     Active Substance: ALPRAZOLAM
     Indication: ANXIETY
     Dosage: UNK
     Route: 065
     Dates: start: 20160211

REACTIONS (8)
  - Leukocytosis [Unknown]
  - Dyspnoea [Unknown]
  - Pancreatitis [Recovered/Resolved]
  - Pleuritic pain [Unknown]
  - Abdominal pain [Unknown]
  - Abdominal pain upper [Unknown]
  - Tachypnoea [Unknown]
  - Feeling abnormal [Unknown]

NARRATIVE: CASE EVENT DATE: 20200305
